FAERS Safety Report 4287078-3 (Version None)
Quarter: 2004Q1

REPORT INFORMATION
  Report Type: 
  Country: None (occurrence: None)
  Receive Date: 20040121
  Receipt Date: 20030613
  Transmission Date: 20041129
  Serious: Yes (Other)
  Sender: FDA-Public Use
  Company Number: A03200301319

PATIENT
  Age: 47 Year
  Sex: Male

DRUGS (6)
  1. PLAVIX [Suspect]
     Indication: ANGIOPLASTY
     Dosage: 300 MG ONCE - ORAL
     Route: 048
  2. PLAVIX [Suspect]
     Indication: MYOCARDIAL INFARCTION
     Dosage: 300 MG ONCE - ORAL
     Route: 048
  3. REOPRO [Suspect]
     Indication: ANGIOPLASTY
  4. REOPRO [Suspect]
     Indication: MYOCARDIAL INFARCTION
  5. ASPIRIN [Suspect]
     Indication: ANGIOPLASTY
  6. ASPIRIN [Suspect]
     Indication: MYOCARDIAL INFARCTION

REACTIONS (1)
  - THROMBOCYTOPENIA [None]
